FAERS Safety Report 16510128 (Version 2)
Quarter: 2019Q4

REPORT INFORMATION
  Report Type: Spontaneous
  Country: US (occurrence: US)
  Receive Date: 20190702
  Receipt Date: 20191213
  Transmission Date: 20200122
  Serious: Yes (Other)
  Sender: FDA-Public Use
  Company Number: US-SA-2019SA176824

PATIENT
  Age: 40 Year
  Sex: Female

DRUGS (1)
  1. DUPIXENT [Suspect]
     Active Substance: DUPILUMAB
     Indication: DERMATITIS ATOPIC
     Dosage: 300 MG, QOW
     Route: 058
     Dates: start: 2018

REACTIONS (11)
  - Rash macular [Unknown]
  - Accident [Unknown]
  - Cellulitis [Recovering/Resolving]
  - Chest pain [Unknown]
  - Vitamin D decreased [Unknown]
  - Condition aggravated [Unknown]
  - Blood iron decreased [Unknown]
  - Thyroid disorder [Unknown]
  - Joint injury [Unknown]
  - Alopecia [Unknown]
  - Tendon injury [Unknown]

NARRATIVE: CASE EVENT DATE: 2019
